FAERS Safety Report 4759647-5 (Version None)
Quarter: 2005Q3

REPORT INFORMATION
  Report Type: 
  Country: None (occurrence: None)
  Receive Date: 20050901
  Receipt Date: 20050427
  Transmission Date: 20060218
  Serious: Yes (Hospitalization, Disabling)
  Sender: FDA-Public Use
  Company Number: US-MERCK-0505USA00268

PATIENT
  Age: 51 Year
  Sex: Male
  Weight: 66 kg

DRUGS (7)
  1. VIOXX [Suspect]
     Indication: SCIATICA
     Route: 048
     Dates: start: 20000101, end: 20030101
  2. TYLENOL W/ CODEINE [Concomitant]
     Route: 065
  3. AMITRIPTYLINE HYDROCHLORIDE [Concomitant]
     Route: 065
     Dates: start: 20000601
  4. ASPIRIN [Concomitant]
     Route: 065
  5. PENICILLIN (UNSPECIFIED) [Concomitant]
     Route: 065
  6. FOLIC ACID [Concomitant]
     Route: 065
  7. IBUPROFEN [Concomitant]
     Route: 065

REACTIONS (1)
  - CEREBROVASCULAR ACCIDENT [None]
